FAERS Safety Report 6801914-5 (Version None)
Quarter: 2010Q2

REPORT INFORMATION
  Report Type: 
  Country: None (occurrence: None)
  Receive Date: 20100629
  Receipt Date: 20100528
  Transmission Date: 20101027
  Serious: Yes (Other)
  Sender: FDA-Public Use
  Company Number: US-ROCHE-709886

PATIENT
  Sex: Female
  Weight: 2.4 kg

DRUGS (3)
  1. PEGINTERFERON ALFA-2A [Suspect]
     Indication: HEPATITIS C
     Route: 064
     Dates: start: 20080624, end: 20081126
  2. RIBAVIRIN [Suspect]
     Indication: HEPATITIS C
     Route: 064
     Dates: start: 20080624, end: 20081126
  3. FLINTSTONES VITAMIN [Concomitant]
     Dates: start: 20090409

REACTIONS (1)
  - PREMATURE BABY [None]
